FAERS Safety Report 20643208 (Version 1)
Quarter: 2022Q1

REPORT INFORMATION
  Report Type: Spontaneous
  Country: US (occurrence: None)
  Receive Date: 20220325
  Receipt Date: 20220325
  Transmission Date: 20220423
  Serious: No
  Sender: FDA-Public Use
  Company Number: None

PATIENT
  Age: 51 Year
  Sex: Female
  Weight: 100.8 kg

DRUGS (4)
  1. PAXLOVID [Suspect]
     Active Substance: NIRMATRELVIR\RITONAVIR
     Indication: COVID-19
     Dates: start: 20220223, end: 20220228
  2. Levonorgesterel IUD [Concomitant]
     Dates: start: 20210121
  3. mometasone furoate inhaler [Concomitant]
     Dates: start: 20210809
  4. CHOLECALCIFEROL [Concomitant]
     Dates: start: 20210908

REACTIONS (4)
  - Vasculitic rash [None]
  - Culture urine positive [None]
  - White blood cells urine positive [None]
  - Escherichia infection [None]

NARRATIVE: CASE EVENT DATE: 20220323
